FAERS Safety Report 9068622 (Version 1)
Quarter: 2013Q1

REPORT INFORMATION
  Report Type: Spontaneous
  Country: US (occurrence: US)
  Receive Date: 20130206
  Receipt Date: 20130206
  Transmission Date: 20140127
  Serious: Yes (Other)
  Sender: FDA-Public Use
  Company Number: US-PFIZER INC-2013048991

PATIENT
  Sex: Female

DRUGS (2)
  1. XANAX [Suspect]
     Dosage: 0.25 MG, UNK
  2. XANAX [Suspect]
     Dosage: 1.5 MG, UNK

REACTIONS (7)
  - Intentional drug misuse [Unknown]
  - Drug dependence [Unknown]
  - Nervousness [Unknown]
  - Nausea [Unknown]
  - Bowel movement irregularity [Unknown]
  - Malaise [Unknown]
  - Middle insomnia [Unknown]
